FAERS Safety Report 19038088 (Version 11)
Quarter: 2023Q4

REPORT INFORMATION
  Report Type: Spontaneous
  Country: US (occurrence: US)
  Receive Date: 20210322
  Receipt Date: 20231020
  Transmission Date: 20240110
  Serious: No
  Sender: FDA-Public Use
  Company Number: US-PFIZER INC-2021224349

PATIENT
  Age: 62 Year
  Sex: Female

DRUGS (3)
  1. XELJANZ XR [Suspect]
     Active Substance: TOFACITINIB CITRATE
     Indication: Rheumatoid arthritis
     Dosage: 11 MG, 1X/DAY
     Route: 048
     Dates: start: 2017
  2. XELJANZ XR [Suspect]
     Active Substance: TOFACITINIB CITRATE
     Dosage: 11 MG, 1X/DAY
     Route: 048
     Dates: start: 20230529
  3. TYLENOL [Concomitant]
     Active Substance: ACETAMINOPHEN
     Indication: Gastric ulcer
     Dosage: UNK

REACTIONS (30)
  - Therapeutic product effect incomplete [Unknown]
  - Illness [Unknown]
  - Gait disturbance [Unknown]
  - Joint swelling [Unknown]
  - Fatigue [Unknown]
  - Condition aggravated [Unknown]
  - Ear infection [Unknown]
  - Vomiting [Unknown]
  - Food poisoning [Unknown]
  - Dyspepsia [Unknown]
  - Back pain [Not Recovered/Not Resolved]
  - Arthralgia [Unknown]
  - Pain [Unknown]
  - Gastroenteritis viral [Unknown]
  - Limb discomfort [Unknown]
  - Pain in extremity [Unknown]
  - Dizziness [Unknown]
  - Head discomfort [Unknown]
  - Swelling face [Unknown]
  - Cough [Unknown]
  - Hypoaesthesia [Unknown]
  - Muscle spasms [Unknown]
  - Vision blurred [Unknown]
  - Vertigo [Unknown]
  - Product dose omission issue [Unknown]
  - Nervousness [Unknown]
  - Asthenia [Unknown]
  - Inflammation [Unknown]
  - Burning sensation [Unknown]
  - Hypertension [Unknown]

NARRATIVE: CASE EVENT DATE: 20220101
